FAERS Safety Report 9445745 (Version 1)
Quarter: 2013Q3

REPORT INFORMATION
  Report Type: Spontaneous
  Country: RU (occurrence: RU)
  Receive Date: 20130807
  Receipt Date: 20130807
  Transmission Date: 20140515
  Serious: Yes (Hospitalization)
  Sender: FDA-Public Use
  Company Number: RU-BRISTOL-MYERS SQUIBB COMPANY-19153923

PATIENT
  Age: 43 Year
  Sex: Female

DRUGS (4)
  1. ABILIFY [Suspect]
     Indication: SCHIZOPHRENIA
     Dosage: RESTARTED IN MID JULY
  2. CLOZAPINE [Concomitant]
  3. LITHIUM [Concomitant]
     Dosage: 2DF:2 TABLETS
  4. TRIHEXYPHENIDYL [Concomitant]

REACTIONS (3)
  - Schizophrenia [Recovering/Resolving]
  - Insomnia [Recovering/Resolving]
  - Emotional distress [Recovering/Resolving]
